FAERS Safety Report 14669505 (Version 1)
Quarter: 2018Q1

REPORT INFORMATION
  Report Type: Report from Study
  Country: TN (occurrence: TN)
  Receive Date: 20180322
  Receipt Date: 20180322
  Transmission Date: 20180509
  Serious: Yes (Death)
  Sender: FDA-Public Use
  Company Number: TN-SA-2018SA080743

PATIENT
  Age: 46 Year
  Sex: Male

DRUGS (3)
  1. ACETYLSALICYLATE LYSINE [Concomitant]
     Active Substance: ASPIRIN DL-LYSINE
     Route: 048
  2. PLAVIX [Suspect]
     Active Substance: CLOPIDOGREL BISULFATE
     Indication: MYOCARDIAL INFARCTION
     Route: 048
     Dates: start: 20170818, end: 20170901
  3. ATORVASTATIN [Concomitant]
     Active Substance: ATORVASTATIN
     Route: 048

REACTIONS (4)
  - Cardiac arrest [Fatal]
  - Syncope [Unknown]
  - Chest pain [Unknown]
  - Malaise [Unknown]

NARRATIVE: CASE EVENT DATE: 20170901
